FAERS Safety Report 4386785-1 (Version None)
Quarter: 2004Q2

REPORT INFORMATION
  Report Type: 
  Country: None (occurrence: None)
  Receive Date: 20040607
  Receipt Date: 20030723
  Transmission Date: 20050107
  Serious: Yes (Disabling)
  Sender: FDA-Public Use
  Company Number: 335467

PATIENT
  Age: 36 Year
  Sex: Female

DRUGS (1)
  1. ACCUTANE [Suspect]
     Indication: ACNE
     Dosage: ORAL
     Route: 048
     Dates: start: 20000320, end: 20000320

REACTIONS (5)
  - ARTHRALGIA [None]
  - HEADACHE [None]
  - MIGRAINE [None]
  - NEURALGIA [None]
  - PHOTOPHOBIA [None]
